FAERS Safety Report 7038849-1 (Version None)
Quarter: 2010Q4

REPORT INFORMATION
  Report Type: 
  Country: None (occurrence: None)
  Receive Date: 20101012
  Receipt Date: 20100621
  Transmission Date: 20110411
  Serious: Yes (Life-Threatening)
  Sender: FDA-Public Use
  Company Number: 2008BI009215

PATIENT
  Age: 40 Year
  Sex: Female
  Weight: 74 kg

DRUGS (5)
  1. TYSABRI [Suspect]
     Indication: MULTIPLE SCLEROSIS
     Route: 042
     Dates: start: 20080307, end: 20080404
  2. BACLOFEN [Concomitant]
     Indication: MULTIPLE SCLEROSIS
     Dates: start: 20060101
  3. FLEXERIL [Concomitant]
     Indication: MULTIPLE SCLEROSIS
     Dates: start: 20080101
  4. CELEBREX [Concomitant]
     Indication: MULTIPLE SCLEROSIS
     Dates: start: 20080101
  5. TOPROL-XL [Concomitant]
     Indication: HYPERTENSION

REACTIONS (2)
  - ANAPHYLACTIC REACTION [None]
  - HYPERSENSITIVITY [None]
